FAERS Safety Report 9530609 (Version 11)
Quarter: 2014Q2

REPORT INFORMATION
  Report Type: Spontaneous
  Country: US (occurrence: US)
  Receive Date: 20130918
  Receipt Date: 20140612
  Transmission Date: 20141212
  Serious: Yes (Hospitalization, Other)
  Sender: FDA-Public Use
  Company Number: US-JNJFOC-20130905345

PATIENT
  Sex: Female
  Weight: 70.31 kg

DRUGS (28)
  1. TYLENOL EXTRA STRENGTH [Suspect]
     Indication: PAIN
     Route: 065
     Dates: start: 2009, end: 20110522
  2. TYLENOL EXTRA STRENGTH [Suspect]
     Indication: ARTHRALGIA
     Route: 065
     Dates: start: 2009, end: 20110522
  3. TYLENOL EXTRA STRENGTH [Suspect]
     Indication: BACK PAIN
     Route: 065
     Dates: start: 2009, end: 20110522
  4. TYLENOL REGULAR STRENGTH [Suspect]
     Indication: ARTHRALGIA
     Route: 065
     Dates: start: 2009, end: 20110522
  5. TYLENOL REGULAR STRENGTH [Suspect]
     Indication: BACK PAIN
     Route: 065
     Dates: start: 2009, end: 20110522
  6. HYDROCODONE/APAP [Concomitant]
     Indication: ARTHRALGIA
     Dosage: ONE TO TWO TABLETS EVERY 4 TO 6 HOURS AS NEEDED
     Route: 065
     Dates: start: 2006, end: 201105
  7. HYDROCODONE/APAP [Concomitant]
     Indication: BACK PAIN
     Dosage: ONE TO TWO TABLETS EVERY 4 TO 6 HOURS AS NEEDED
     Route: 065
     Dates: start: 2006, end: 201105
  8. LISINOPRIL [Concomitant]
     Indication: HYPERTENSION
     Route: 065
     Dates: start: 2009, end: 2011
  9. HCTZ [Concomitant]
     Indication: HYPERTENSION
     Route: 065
     Dates: start: 2009, end: 2011
  10. CLONAZEPAM [Concomitant]
     Indication: SCHIZOPHRENIA
     Route: 065
     Dates: start: 2009, end: 2011
  11. CLONAZEPAM [Concomitant]
     Indication: ANXIETY
     Route: 065
     Dates: start: 2009, end: 2011
  12. TOPAMAX [Concomitant]
     Indication: MIGRAINE
     Route: 065
     Dates: start: 2008, end: 2011
  13. CYMBALTA [Concomitant]
     Indication: DEPRESSION
     Route: 065
     Dates: start: 2009, end: 201105
  14. MINOCYCLINE [Concomitant]
     Indication: PRODUCT USED FOR UNKNOWN INDICATION
     Route: 048
  15. WELLBUTRIN XR [Concomitant]
     Route: 065
  16. TORADOL [Concomitant]
     Indication: PRODUCT USED FOR UNKNOWN INDICATION
     Route: 030
     Dates: start: 20101130, end: 20101130
  17. TORADOL [Concomitant]
     Indication: PRODUCT USED FOR UNKNOWN INDICATION
     Route: 030
  18. PREDNISONE [Concomitant]
     Indication: PRODUCT USED FOR UNKNOWN INDICATION
     Route: 048
  19. PREDNISONE [Concomitant]
     Indication: PRODUCT USED FOR UNKNOWN INDICATION
     Route: 048
     Dates: start: 20101130, end: 20101130
  20. COMPAZINE [Concomitant]
     Indication: PRODUCT USED FOR UNKNOWN INDICATION
     Route: 030
     Dates: start: 20101130, end: 20101130
  21. COMPAZINE [Concomitant]
     Indication: PRODUCT USED FOR UNKNOWN INDICATION
     Route: 030
  22. BENADRYL [Concomitant]
     Indication: PRODUCT USED FOR UNKNOWN INDICATION
     Route: 030
  23. BENADRYL [Concomitant]
     Indication: PRODUCT USED FOR UNKNOWN INDICATION
     Route: 030
     Dates: start: 20101130, end: 20101130
  24. MORPHINE [Concomitant]
     Indication: PRODUCT USED FOR UNKNOWN INDICATION
     Route: 030
     Dates: start: 20101130, end: 20101130
  25. MORPHINE [Concomitant]
     Indication: PRODUCT USED FOR UNKNOWN INDICATION
     Route: 030
  26. ATROVENT [Concomitant]
     Indication: PRODUCT USED FOR UNKNOWN INDICATION
     Route: 065
  27. PRO-AIR [Concomitant]
     Indication: PRODUCT USED FOR UNKNOWN INDICATION
     Route: 065
  28. ANUCORT-HC [Concomitant]
     Indication: PRODUCT USED FOR UNKNOWN INDICATION
     Route: 065

REACTIONS (8)
  - Acute hepatic failure [Unknown]
  - Liver injury [Not Recovered/Not Resolved]
  - Depression [Unknown]
  - Emotional distress [Unknown]
  - Anxiety [Unknown]
  - Injury [Unknown]
  - Schizophrenia [Unknown]
  - Drug hypersensitivity [Unknown]
